FAERS Safety Report 8274238-X (Version None)
Quarter: 2012Q2

REPORT INFORMATION
  Report Type: 
  Country: None (occurrence: None)
  Receive Date: 20120411
  Receipt Date: 20120405
  Transmission Date: 20120825
  Serious: Yes (Death, Hospitalization, Other)
  Sender: FDA-Public Use
  Company Number: US-BAYER-201041742NA

PATIENT
  Age: 27 Year
  Sex: Male
  Weight: 70 kg

DRUGS (21)
  1. SOTALOL HCL [Concomitant]
     Dosage: 240 MG EVERY NIGHT
     Route: 048
     Dates: start: 20070901
  2. TRASYLOL [Suspect]
     Indication: TRICUSPID VALVE REPAIR
     Dosage: UNK
     Dates: start: 20070103
  3. TRASYLOL [Suspect]
     Indication: CARDIAC ABLATION
  4. PROCAINAMIDE [Concomitant]
     Dosage: 1500 MG EVERY MORNING
     Route: 048
  5. FLECAINIDE ACETATE [Concomitant]
     Dosage: 100 MG, BID
     Route: 048
     Dates: end: 20070928
  6. MAGNESIUM OXIDE [Concomitant]
     Dosage: 400 MG, BID
     Route: 048
  7. SOTALOL HCL [Concomitant]
  8. AMIODARONE HCL [Concomitant]
  9. TIKOSYN [Concomitant]
     Dosage: 500 MCG/24HR, AM
     Route: 048
  10. PROCANBID [Concomitant]
     Dosage: 1000 MG, BID
     Route: 048
     Dates: start: 20070927
  11. TOPROL-XL [Concomitant]
     Dosage: 50 MG, PM
     Route: 048
  12. TIKOSYN [Concomitant]
     Dosage: 200 MCG/24HR, PM
     Route: 048
  13. COUMADIN [Concomitant]
     Dosage: 5 MG, UNK
     Route: 048
  14. HEPARIN [Concomitant]
  15. PROCAINAMIDE [Concomitant]
     Dosage: 1500 MG EVERY EVENING
     Route: 048
  16. SOTALOL HCL [Concomitant]
     Dosage: 360 MG EVERY MORNING
     Route: 048
     Dates: start: 20070901
  17. BLOOD AND RELATED PRODUCTS [Concomitant]
  18. TOPROL-XL [Concomitant]
     Dosage: 100 MG AM
     Route: 048
  19. TRASYLOL [Suspect]
     Indication: PULMONARY VALVE REPLACEMENT
     Route: 042
     Dates: start: 20071220
  20. TRASYLOL [Suspect]
     Indication: CARDIAC PACEMAKER INSERTION
  21. PROTAMINE SULFATE [Concomitant]

REACTIONS (13)
  - RENAL FAILURE [None]
  - ANXIETY [None]
  - PAIN [None]
  - RENAL INJURY [None]
  - EMOTIONAL DISTRESS [None]
  - STRESS [None]
  - INJURY [None]
  - RENAL IMPAIRMENT [None]
  - UNEVALUABLE EVENT [None]
  - THROMBOSIS [None]
  - MULTI-ORGAN FAILURE [None]
  - FEAR [None]
  - DEATH [None]
